FAERS Safety Report 9796339 (Version 1)
Quarter: 2014Q1

REPORT INFORMATION
  Report Type: Spontaneous
  Country: US (occurrence: US)
  Receive Date: 20140103
  Receipt Date: 20140103
  Transmission Date: 20141002
  Serious: No
  Sender: FDA-Public Use
  Company Number: US-BAYER-2014-000688

PATIENT
  Age: 67 Year
  Sex: Male
  Weight: 118 kg

DRUGS (5)
  1. ALEVE TABLET [Suspect]
     Indication: MYALGIA
     Dosage: 2 DF, BID
     Route: 048
     Dates: start: 20131228
  2. LORAZEPAM [Concomitant]
  3. ZOLOFT [Concomitant]
  4. NORTRIPTYLINE [Concomitant]
  5. NORVASC [Concomitant]

REACTIONS (1)
  - Extra dose administered [None]
